FAERS Safety Report 17461159 (Version 1)
Quarter: 2020Q1

REPORT INFORMATION
  Report Type: Spontaneous
  Country: US (occurrence: US)
  Receive Date: 20200226
  Receipt Date: 20200226
  Transmission Date: 20200409
  Serious: No
  Sender: FDA-Public Use
  Company Number: None

PATIENT
  Sex: Female

DRUGS (1)
  1. FENTANYL TRANSDERMAL SYSTEM [Suspect]
     Active Substance: FENTANYL
     Dosage: ?          OTHER FREQUENCY:Q72 HOURS;?
     Route: 062

REACTIONS (2)
  - Accidental exposure to product [None]
  - Dizziness [None]

NARRATIVE: CASE EVENT DATE: 20200221
